FAERS Safety Report 8887070 (Version 1)
Quarter: 2012Q4

REPORT INFORMATION
  Report Type: 
  Country: IT (occurrence: IT)
  Receive Date: 20121101
  Receipt Date: 20121101
  Transmission Date: 20130627
  Serious: Yes (Hospitalization, Other)
  Sender: FDA-Public Use
  Company Number: PHHY2012IT097470

PATIENT
  Age: 82 Year
  Sex: Female

DRUGS (15)
  1. LEVOFLOXACIN [Suspect]
     Indication: HYPERPYREXIA
     Dosage: 500 mg, Daily
     Route: 048
     Dates: start: 20120801, end: 20120810
  2. CEFTRIAXONE [Suspect]
     Indication: HYPERPYREXIA
     Dosage: 1 g, Daily
     Route: 030
     Dates: start: 20120811, end: 20120823
  3. MICARDIS PLUS [Concomitant]
     Indication: CARDIAC FAILURE
     Dates: start: 20080214
  4. CARDIOASPIRIN [Concomitant]
     Indication: CARDIAC FAILURE
     Dates: start: 20080214
  5. KEPPRA [Concomitant]
  6. SPIRIVA [Concomitant]
  7. SERETIDE [Concomitant]
  8. CATAPRES-TTS [Concomitant]
     Route: 062
  9. ZYLORIC [Concomitant]
  10. ZANEDIP [Concomitant]
  11. LASIX [Concomitant]
  12. FERRO-GRAD [Concomitant]
  13. ENALAPRIL [Concomitant]
  14. OMEPRAZOLE [Concomitant]
  15. CORTICOSTEROID NOS [Suspect]

REACTIONS (8)
  - Acute generalised exanthematous pustulosis [Recovering/Resolving]
  - Hyperpyrexia [Unknown]
  - Dermatitis [Recovering/Resolving]
  - Erythema [Recovering/Resolving]
  - Renal failure chronic [Unknown]
  - Dehydration [Unknown]
  - Anaemia macrocytic [Unknown]
  - Cough [Unknown]
